FAERS Safety Report 10831086 (Version 1)
Quarter: 2015Q1

REPORT INFORMATION
  Report Type: Report from Study
  Country: US (occurrence: US)
  Receive Date: 20150219
  Receipt Date: 20150219
  Transmission Date: 20150721
  Serious: No
  Sender: FDA-Public Use
  Company Number: US-ABBVIE-14P-163-1194123-00

PATIENT
  Age: 52 Year
  Sex: Female

DRUGS (1)
  1. HUMIRA [Suspect]
     Active Substance: ADALIMUMAB
     Indication: RHEUMATOID ARTHRITIS
     Dates: start: 20140117

REACTIONS (6)
  - Musculoskeletal stiffness [Recovering/Resolving]
  - Night sweats [Recovered/Resolved]
  - Fatigue [Recovering/Resolving]
  - Headache [Recovering/Resolving]
  - Pyrexia [Recovered/Resolved]
  - Oropharyngeal pain [Recovering/Resolving]

NARRATIVE: CASE EVENT DATE: 20140120
